FAERS Safety Report 8120485 (Version 2)
Quarter: 2012Q4

REPORT INFORMATION
  Report Type: 
  Country: US (occurrence: US)
  Receive Date: 20110906
  Receipt Date: 20121126
  Transmission Date: 20130627
  Serious: Yes (Other)
  Sender: FDA-Public Use
  Company Number: US-AMGEN-USASP2011025288

PATIENT
  Age: 28 Year
  Sex: Female

DRUGS (3)
  1. NPLATE [Suspect]
     Indication: THROMBOTIC THROMBOCYTOPENIC PURPURA
     Dosage: 3 mug/kg, qwk
     Route: 058
     Dates: start: 20101108
  2. FOLATE [Concomitant]
     Indication: PREGNANCY
     Dosage: 1 mg, qd
     Dates: start: 20110301
  3. PRENATAL VITAMINS                  /01549301/ [Concomitant]
     Indication: PREGNANCY
     Dosage: 1 UNK, qd
     Route: 048

REACTIONS (2)
  - Thrombocytosis [Unknown]
  - Premature delivery [Unknown]
